FAERS Safety Report 4804700-0 (Version None)
Quarter: 2005Q4

REPORT INFORMATION
  Report Type: 
  Country: None (occurrence: None)
  Receive Date: 20051014
  Receipt Date: 20051006
  Transmission Date: 20060501
  Serious: Yes (Hospitalization)
  Sender: FDA-Public Use
  Company Number: 163-20785-05070272

PATIENT
  Age: 67 Year
  Sex: Male

DRUGS (5)
  1. THALOMID [Suspect]
     Indication: MYELODYSPLASTIC SYNDROME
     Dosage: 50 MG, DAILY AT BED TIME, ORAL
     Route: 048
     Dates: start: 20050501, end: 20050601
  2. ARANESP [Concomitant]
  3. ALLOPURINOL (ALLOPURINOL) (UNKNOWN) [Concomitant]
  4. GLUCOPHAGE [Concomitant]
  5. GLYBURIDE (GLIBENCLAMIDE) (UNKNOWN) [Concomitant]

REACTIONS (13)
  - AUTOIMMUNE DISORDER [None]
  - CONFUSIONAL STATE [None]
  - CONJUNCTIVAL DISORDER [None]
  - DEAFNESS UNILATERAL [None]
  - DIPLOPIA [None]
  - EYE PAIN [None]
  - EYE SWELLING [None]
  - EYELID PTOSIS [None]
  - MENTAL STATUS CHANGES [None]
  - NAUSEA [None]
  - OEDEMA [None]
  - PERIORBITAL OEDEMA [None]
  - VASCULITIS [None]
